FAERS Safety Report 22913056 (Version 14)
Quarter: 2024Q2

REPORT INFORMATION
  Report Type: Report from Study
  Country: SA (occurrence: SA)
  Receive Date: 20230906
  Receipt Date: 20240625
  Transmission Date: 20240716
  Serious: Yes (Hospitalization)
  Sender: FDA-Public Use
  Company Number: SA-ROCHE-3300624

PATIENT
  Age: 8 Year
  Sex: Male
  Weight: 19.8 kg

DRUGS (7)
  1. EVRYSDI [Suspect]
     Active Substance: RISDIPLAM
     Indication: Spinal muscular atrophy
     Route: 048
     Dates: start: 20230105
  2. EVRYSDI [Suspect]
     Active Substance: RISDIPLAM
     Route: 048
  3. EVRYSDI [Suspect]
     Active Substance: RISDIPLAM
     Route: 048
  4. EVRYSDI [Suspect]
     Active Substance: RISDIPLAM
     Route: 048
  5. EVRYSDI [Suspect]
     Active Substance: RISDIPLAM
     Route: 048
  6. EVRYSDI [Suspect]
     Active Substance: RISDIPLAM
     Route: 048
  7. HYDROXYUREA [Concomitant]
     Active Substance: HYDROXYUREA
     Indication: Sickle cell anaemia
     Route: 048
     Dates: start: 20240101

REACTIONS (14)
  - Diarrhoea [Recovered/Resolved]
  - Accidental overdose [Unknown]
  - Product administration error [Unknown]
  - Headache [Unknown]
  - Pyrexia [Recovered/Resolved]
  - Full blood count abnormal [Recovered/Resolved]
  - Product dose omission issue [Unknown]
  - Product complaint [Unknown]
  - Rhinorrhoea [Recovered/Resolved]
  - Epistaxis [Recovered/Resolved]
  - Abdominal pain upper [Recovered/Resolved]
  - Eye inflammation [Recovered/Resolved]
  - Nasopharyngitis [Recovered/Resolved]
  - Cough [Recovered/Resolved]

NARRATIVE: CASE EVENT DATE: 20230225
